FAERS Safety Report 6017168-6 (Version None)
Quarter: 2008Q4

REPORT INFORMATION
  Report Type: 
  Country: None (occurrence: None)
  Receive Date: 20081223
  Receipt Date: 20081210
  Transmission Date: 20090506
  Serious: Yes (Other)
  Sender: FDA-Public Use
  Company Number: JP-ROCHE-545434

PATIENT
  Sex: Female
  Weight: 51 kg

DRUGS (9)
  1. PEGASYS [Suspect]
     Indication: HEPATITIS C
     Dosage: DOSE DECREASED
     Route: 058
     Dates: start: 20070705, end: 20070801
  2. PEGASYS [Suspect]
     Route: 058
     Dates: start: 20070823, end: 20080103
  3. PEGASYS [Suspect]
     Route: 058
     Dates: start: 20080117
  4. COPEGUS [Suspect]
     Indication: HEPATITIS C
     Dosage: DIVIDED INTO 2 DOSES, DOSE DECREASED
     Route: 048
     Dates: start: 20070705, end: 20070822
  5. COPEGUS [Suspect]
     Route: 048
     Dates: start: 20070823
  6. ANALGESIC NOS [Suspect]
     Indication: UPPER RESPIRATORY TRACT INFLAMMATION
     Dosage: DRUG: ANTIPYRETICS, ANALGESICS AND ANTI-INFLAMMATORY AGENTS
     Route: 065
     Dates: start: 20080108
  7. MYSLEE [Suspect]
     Indication: INSOMNIA
     Route: 048
  8. CALONAL [Concomitant]
     Dosage: TAKEN AS NEEDED
     Route: 048
     Dates: start: 20070705
  9. ALLELOCK [Concomitant]
     Route: 048
     Dates: start: 20071227

REACTIONS (3)
  - DELIRIUM [None]
  - NEUTROPHIL COUNT DECREASED [None]
  - PLATELET COUNT DECREASED [None]
